FAERS Safety Report 6434018-4 (Version None)
Quarter: 2009Q4

REPORT INFORMATION
  Report Type: 
  Country: None (occurrence: None)
  Receive Date: 20091110
  Receipt Date: 20091102
  Transmission Date: 20100525
  Serious: Yes (Other)
  Sender: FDA-Public Use
  Company Number: PHHY2009FR48236

PATIENT
  Sex: Female

DRUGS (5)
  1. FEMARA [Suspect]
     Indication: BREAST CANCER RECURRENT
     Dosage: 2.5 MG, QD
     Route: 048
     Dates: start: 20050530, end: 20090825
  2. DILTIAZEM [Concomitant]
     Dosage: 1 DF, QD
  3. KESTINE [Concomitant]
     Dosage: 1 DF, QD
  4. ESBERIVEN FORTE [Concomitant]
     Dosage: 3 DF/ DAY
  5. INIPOMP [Concomitant]
     Dosage: 1 DF, QD

REACTIONS (5)
  - HYPERTRIGLYCERIDAEMIA [None]
  - MACULAR OEDEMA [None]
  - OCULAR DISCOMFORT [None]
  - RETINAL VEIN OCCLUSION [None]
  - VISUAL ACUITY REDUCED [None]
